FAERS Safety Report 21944746 (Version 1)
Quarter: 2023Q1

REPORT INFORMATION
  Report Type: Report from Study
  Country: US (occurrence: US)
  Receive Date: 20230202
  Receipt Date: 20230202
  Transmission Date: 20230417
  Serious: No
  Sender: FDA-Public Use
  Company Number: US-GSKCCFUS-Case-01573440_AE-8892

PATIENT

DRUGS (1)
  1. BELANTAMAB MAFODOTIN [Suspect]
     Active Substance: BELANTAMAB MAFODOTIN
     Indication: Plasma cell myeloma
     Dosage: 2.5 MG/KG, Z (Q4 WEEKS. 195 MG)
     Dates: start: 20220616, end: 20220715

REACTIONS (10)
  - Visual acuity reduced [Not Recovered/Not Resolved]
  - Keratopathy [Recovering/Resolving]
  - Eye disorder [Recovering/Resolving]
  - Corneal toxicity [Recovering/Resolving]
  - Vision blurred [Recovering/Resolving]
  - Corneal epithelial microcysts [Recovering/Resolving]
  - Ocular toxicity [Recovered/Resolved]
  - Night blindness [Not Recovered/Not Resolved]
  - Dry eye [Not Recovered/Not Resolved]
  - Foreign body sensation in eyes [Not Recovered/Not Resolved]

NARRATIVE: CASE EVENT DATE: 20220706
